FAERS Safety Report 4569355-1 (Version None)
Quarter: 2005Q1

REPORT INFORMATION
  Report Type: 
  Country: None (occurrence: None)
  Receive Date: 20050203
  Receipt Date: 20050131
  Transmission Date: 20050727
  Serious: Yes (Life-Threatening)
  Sender: FDA-Public Use
  Company Number: DE-GLAXOSMITHKLINE-D0045784A

PATIENT
  Sex: Female
  Weight: 3 kg

DRUGS (3)
  1. LAMICTAL [Suspect]
     Indication: EPILEPSY
     Dosage: 100MG PER DAY
     Dates: start: 20040721
  2. VITAMIN K [Concomitant]
     Indication: PROPHYLAXIS
     Route: 048
     Dates: start: 20050106
  3. ZYMAFLUOR [Concomitant]
     Indication: PROPHYLAXIS
     Dosage: .5MG PER DAY
     Route: 048
     Dates: start: 20050101

REACTIONS (10)
  - ACIDOSIS [None]
  - ASPHYXIA [None]
  - DRUG EXPOSURE DURING PREGNANCY [None]
  - HIP DYSPLASIA [None]
  - HYPOVOLAEMIA [None]
  - MUSCULAR WEAKNESS [None]
  - NEONATAL INFECTION [None]
  - PNEUMOTHORAX [None]
  - SHOCK [None]
  - TACHYCARDIA [None]
